FAERS Safety Report 14879050 (Version 1)
Quarter: 2018Q2

REPORT INFORMATION
  Report Type: Spontaneous
  Country: US (occurrence: US)
  Receive Date: 20180511
  Receipt Date: 20180511
  Transmission Date: 20180711
  Serious: No
  Sender: FDA-Public Use
  Company Number: US-SA-2017SA145846

PATIENT
  Age: 40 Year
  Sex: Female

DRUGS (3)
  1. APIDRA SOLOSTAR [Suspect]
     Active Substance: INSULIN GLULISINE
     Indication: DIABETES MELLITUS
     Dosage: DOSE:25 UNIT(S)
     Route: 058
     Dates: start: 2016
  2. SOLOSTAR [Suspect]
     Active Substance: DEVICE
     Indication: DIABETES MELLITUS
     Dates: start: 2016
  3. HUMULIN NOS [Concomitant]
     Active Substance: INSULIN HUMAN
     Route: 065

REACTIONS (4)
  - Extra dose administered [Unknown]
  - Wrong technique in product usage process [Unknown]
  - Dizziness [Unknown]
  - Device issue [Unknown]

NARRATIVE: CASE EVENT DATE: 20170804
